FAERS Safety Report 20005987 (Version 2)
Quarter: 2022Q1

REPORT INFORMATION
  Report Type: Spontaneous
  Country: JP (occurrence: JP)
  Receive Date: 20211027
  Receipt Date: 20220112
  Transmission Date: 20220424
  Serious: No
  Sender: FDA-Public Use
  Company Number: JP-TAKEDA-2021TJP110122

PATIENT
  Age: 17 Year
  Sex: Female
  Weight: 45 kg

DRUGS (1)
  1. TRINTELLIX [Suspect]
     Active Substance: VORTIOXETINE HYDROBROMIDE
     Indication: Depressive symptom
     Dosage: 10 MILLIGRAM, QD
     Route: 048
     Dates: start: 20201114, end: 20201122

REACTIONS (2)
  - Irritability [Recovering/Resolving]
  - Product administered to patient of inappropriate age [Unknown]

NARRATIVE: CASE EVENT DATE: 20201114
